FAERS Safety Report 12921125 (Version 7)
Quarter: 2021Q4

REPORT INFORMATION
  Report Type: Spontaneous
  Country: US (occurrence: US)
  Receive Date: 20161107
  Receipt Date: 20211028
  Transmission Date: 20220303
  Serious: Yes (Hospitalization, Other)
  Sender: FDA-Public Use
  Company Number: US-PFIZER INC-2016510155

PATIENT
  Age: 51 Year
  Sex: Female
  Weight: 79.38 kg

DRUGS (16)
  1. RAPAMUNE [Suspect]
     Active Substance: SIROLIMUS
     Indication: Prophylaxis against transplant rejection
     Dosage: 1 MG, 1X/DAY
     Route: 048
     Dates: start: 2015, end: 201701
  2. RAPAMUNE [Suspect]
     Active Substance: SIROLIMUS
     Dosage: 0.5 MG, 3X/DAY
     Route: 048
     Dates: start: 2015
  3. RAPAMUNE [Suspect]
     Active Substance: SIROLIMUS
     Dosage: 2 MG, 1X/DAY
     Route: 048
     Dates: end: 20180425
  4. RAPAMUNE [Suspect]
     Active Substance: SIROLIMUS
     Dosage: 2 MG, 1XDAY
     Route: 048
     Dates: start: 201807
  5. URSODIOL [Concomitant]
     Active Substance: URSODIOL
     Indication: Biotherapy
     Dosage: 300 MG, 2X/DAY
     Route: 048
     Dates: start: 2013
  6. URSODIOL [Concomitant]
     Active Substance: URSODIOL
     Indication: Liver transplant
  7. URSODIOL [Concomitant]
     Active Substance: URSODIOL
     Indication: Biliary tract disorder
  8. URSODIOL [Concomitant]
     Active Substance: URSODIOL
     Indication: Biotherapy
     Dosage: 250 MG, 3X/DAY
     Dates: start: 2014
  9. URSODIOL [Concomitant]
     Active Substance: URSODIOL
     Indication: Liver transplant
  10. URSODIOL [Concomitant]
     Active Substance: URSODIOL
     Indication: Biliary tract disorder
  11. NEXIUM [Concomitant]
     Active Substance: ESOMEPRAZOLE MAGNESIUM
     Indication: Prophylaxis against gastrointestinal ulcer
     Dosage: 40 MG, 1X/DAY
  12. ALENDRONATE [Concomitant]
     Active Substance: ALENDRONATE SODIUM
     Indication: Osteoporosis
     Dosage: 70 MG, WEEKLY
  13. VITAMIN D [Concomitant]
     Active Substance: VITAMIN D NOS
     Indication: Vitamin D decreased
     Dosage: 2000 IU, 1X/DAY
     Dates: start: 201607
  14. BIOTIN [Concomitant]
     Active Substance: BIOTIN
     Indication: Alopecia
     Dosage: 5000 UG, 1X/DAY
     Dates: start: 2015
  15. OMEPRAZOLE [Concomitant]
     Active Substance: OMEPRAZOLE
     Indication: Prophylaxis against transplant rejection
     Dosage: 40 MG, 1X/DAY
  16. VITAMIN D3 [Concomitant]
     Active Substance: CHOLECALCIFEROL
     Indication: Osteoporosis
     Dosage: 2000 IU, 1X/DAY
     Dates: start: 2017

REACTIONS (14)
  - Chest discomfort [Recovered/Resolved]
  - Blood pressure increased [Recovered/Resolved]
  - Hernia [Recovered/Resolved]
  - Hernia perforation [Recovered/Resolved]
  - Disease recurrence [Recovered/Resolved]
  - Sepsis [Recovered/Resolved]
  - Disease recurrence [Recovered/Resolved]
  - Post procedural sepsis [Unknown]
  - Biliary tract disorder [Unknown]
  - Off label use [Unknown]
  - Product use in unapproved indication [Unknown]
  - Hypoaesthesia [Not Recovered/Not Resolved]
  - Nerve compression [Not Recovered/Not Resolved]
  - Cardiac disorder [Unknown]

NARRATIVE: CASE EVENT DATE: 20150101
